FAERS Safety Report 11744011 (Version 1)
Quarter: 2015Q4

REPORT INFORMATION
  Report Type: Spontaneous
  Country: US (occurrence: US)
  Receive Date: 20151116
  Receipt Date: 20151116
  Transmission Date: 20160304
  Serious: No
  Sender: FDA-Public Use
  Company Number: US-DSJP-DSU-2014-132269

PATIENT
  Sex: Female
  Weight: 90.7 kg

DRUGS (4)
  1. SYMBICORT [Concomitant]
     Active Substance: BUDESONIDE\FORMOTEROL FUMARATE DIHYDRATE
     Indication: ASTHMA
     Dosage: UNK, BID
     Route: 055
  2. WELCHOL [Suspect]
     Active Substance: COLESEVELAM HYDROCHLORIDE
     Indication: HYPERCHOLESTEROLAEMIA
     Dosage: 3.75 G, QD
     Route: 048
     Dates: start: 2014, end: 20141208
  3. LETROZOLE. [Concomitant]
     Active Substance: LETROZOLE
     Indication: PROPHYLAXIS
     Dosage: UNK
     Dates: start: 2010
  4. WELCHOL [Suspect]
     Active Substance: COLESEVELAM HYDROCHLORIDE
     Indication: BLOOD GLUCOSE INCREASED

REACTIONS (3)
  - Erythema [Not Recovered/Not Resolved]
  - Constipation [Unknown]
  - Nausea [Unknown]

NARRATIVE: CASE EVENT DATE: 2014
